FAERS Safety Report 4798294-6 (Version None)
Quarter: 2005Q4

REPORT INFORMATION
  Report Type: 
  Country: None (occurrence: None)
  Receive Date: 20051006
  Receipt Date: 20051006
  Transmission Date: 20060501
  Serious: Yes (Life-Threatening)
  Sender: FDA-Public Use
  Company Number: None

PATIENT
  Age: 50 Year
  Sex: Female

DRUGS (6)
  1. LIDOCAINE [Suspect]
     Indication: ANAESTHESIA
     Dosage: TOPICAL SOLN  4%
     Route: 061
     Dates: start: 20050203
  2. ACETAMINOPHEN [Concomitant]
  3. DIPHENHYDRAMINE HCL [Concomitant]
  4. LORAZEPAM [Concomitant]
  5. PERCOCET [Concomitant]
  6. HEPARIN [Concomitant]

REACTIONS (2)
  - METHAEMOGLOBINAEMIA [None]
  - OXYGEN SATURATION DECREASED [None]
